FAERS Safety Report 7571290-1 (Version None)
Quarter: 2011Q2

REPORT INFORMATION
  Report Type: 
  Country: None (occurrence: None)
  Receive Date: 20110624
  Receipt Date: 20110617
  Transmission Date: 20111010
  Serious: Yes (Hospitalization)
  Sender: FDA-Public Use
  Company Number: A0932613A

PATIENT
  Age: 81 Year
  Sex: Female

DRUGS (3)
  1. MELPHALAN HYDROCHLORIDE [Suspect]
     Dosage: 10MG CYCLIC
     Route: 048
     Dates: start: 20110425, end: 20110515
  2. REVLIMID [Suspect]
     Dosage: 5MG CYCLIC
     Route: 048
     Dates: start: 20110314
  3. PREDNISONE [Suspect]
     Dosage: 100MG CYCLIC
     Route: 048
     Dates: start: 20110425

REACTIONS (2)
  - DEEP VEIN THROMBOSIS [None]
  - ATRIAL FIBRILLATION [None]
